FAERS Safety Report 24315117 (Version 3)
Quarter: 2024Q4

REPORT INFORMATION
  Report Type: Spontaneous
  Country: AU (occurrence: AU)
  Receive Date: 20240913
  Receipt Date: 20241118
  Transmission Date: 20250115
  Serious: Yes (Other)
  Sender: ROCHE
  Company Number: AU-002147023-NVSC2024AU181037

PATIENT
  Sex: Female

DRUGS (3)
  1. XOLAIR [Suspect]
     Active Substance: OMALIZUMAB
     Indication: Anaphylactic reaction
     Dosage: 3 VIALS AT A TIME, QW (150 MG EVERY 3 DAYS WHICH IS 3 ML WEEKLY)
     Route: 065
  2. XOLAIR [Suspect]
     Active Substance: OMALIZUMAB
     Indication: Mast cell activation syndrome
     Dosage: 3 VIALS AT A TIME, QW (150 MG EVERY 3 DAYS WHICH IS 3 ML WEEKLY)
     Route: 065
  3. XOLAIR [Suspect]
     Active Substance: OMALIZUMAB
     Indication: Urticaria chronic

REACTIONS (6)
  - Anaphylactic reaction [Unknown]
  - Heart rate increased [Unknown]
  - Urticaria [Unknown]
  - Rash [Unknown]
  - Product supply issue [Unknown]
  - Off label use [Unknown]
